FAERS Safety Report 7255138-0 (Version None)
Quarter: 2011Q1

REPORT INFORMATION
  Report Type: 
  Country: None (occurrence: None)
  Receive Date: 20110129
  Receipt Date: 20100202
  Transmission Date: 20110831
  Serious: No
  Sender: FDA-Public Use
  Company Number: US-ABBOTT-10P-163-0624053-00

PATIENT
  Sex: Female
  Weight: 65.83 kg

DRUGS (5)
  1. METHOTREXATE [Concomitant]
     Indication: RHEUMATOID ARTHRITIS
     Route: 048
  2. HUMIRA [Suspect]
     Indication: RHEUMATOID ARTHRITIS
     Route: 058
     Dates: start: 20080901
  3. ASPIRIN [Concomitant]
     Indication: CARDIAC DISORDER
  4. RED YEAST RICE [Concomitant]
     Indication: BLOOD CHOLESTEROL
  5. FOLIC ACID [Concomitant]
     Indication: RHEUMATOID ARTHRITIS

REACTIONS (4)
  - RASH MACULAR [None]
  - RASH PAPULAR [None]
  - RASH PRURITIC [None]
  - EXFOLIATIVE RASH [None]
